FAERS Safety Report 24890052 (Version 1)
Quarter: 2025Q1

REPORT INFORMATION
  Report Type: Report from Study
  Country: US (occurrence: US)
  Receive Date: 20250127
  Receipt Date: 20250127
  Transmission Date: 20250409
  Serious: Yes (Other)
  Sender: NOVARTIS
  Company Number: US-002147023-NVSC2024US061836

PATIENT
  Age: 80 Year
  Sex: Female

DRUGS (4)
  1. LEQVIO [Suspect]
     Active Substance: INCLISIRAN SODIUM
     Indication: Product used for unknown indication
     Route: 058
     Dates: start: 20231213
  2. LEQVIO [Suspect]
     Active Substance: INCLISIRAN SODIUM
     Route: 058
     Dates: start: 20240624
  3. LEQVIO [Suspect]
     Active Substance: INCLISIRAN SODIUM
     Route: 058
     Dates: start: 20240729
  4. LEQVIO [Suspect]
     Active Substance: INCLISIRAN SODIUM
     Route: 058
     Dates: start: 20241227

REACTIONS (15)
  - Rash macular [Not Recovered/Not Resolved]
  - Cellulitis [Not Recovered/Not Resolved]
  - Chest pain [Not Recovered/Not Resolved]
  - Arthralgia [Not Recovered/Not Resolved]
  - Neck pain [Not Recovered/Not Resolved]
  - Lymph node pain [Not Recovered/Not Resolved]
  - Nasopharyngitis [Not Recovered/Not Resolved]
  - Pain in extremity [Not Recovered/Not Resolved]
  - Malaise [Not Recovered/Not Resolved]
  - Joint stiffness [Not Recovered/Not Resolved]
  - Musculoskeletal stiffness [Unknown]
  - Back pain [Unknown]
  - Gait disturbance [Unknown]
  - Micturition disorder [Recovered/Resolved]
  - Dizziness [Recovered/Resolved]

NARRATIVE: CASE EVENT DATE: 20240624
